FAERS Safety Report 22199796 (Version 2)
Quarter: 2023Q2

REPORT INFORMATION
  Report Type: Spontaneous
  Country: GB (occurrence: GB)
  Receive Date: 20230412
  Receipt Date: 20230512
  Transmission Date: 20230722
  Serious: Yes (Hospitalization, Other)
  Sender: FDA-Public Use
  Company Number: None

PATIENT
  Age: 60 Year

DRUGS (9)
  1. PREGABALIN [Suspect]
     Active Substance: PREGABALIN
     Indication: Product used for unknown indication
     Dosage: 300 MILLIGRAM, BID (600 MILLIGRAM, QD)
     Route: 065
  2. BUPRENORPHINE [Concomitant]
     Active Substance: BUPRENORPHINE
     Indication: Product used for unknown indication
     Dosage: UNK 10 MICROGRAMS/HR PATCH- CHANGED ONCE A WEEK ON TUESDAYS, ONCE WEEKLY
     Route: 065
  3. FLUOXETINE [Concomitant]
     Active Substance: FLUOXETINE HYDROCHLORIDE
     Indication: Product used for unknown indication
     Dosage: 20 MILLIGRAM QD (OM) (MORNING)
     Route: 065
  4. POLYETHYLENE GLYCOLS [Concomitant]
     Active Substance: POLYETHYLENE GLYCOLS
     Indication: Product used for unknown indication
     Dosage: 3 DOSAGE FORM, QD (SACHET) (TDS)
     Route: 065
  5. OMEPRAZOLE [Concomitant]
     Active Substance: OMEPRAZOLE
     Indication: Product used for unknown indication
     Dosage: 20 MILLIGRAM QD (OM) (MORNING)
     Route: 065
  6. ACETAMINOPHEN [Concomitant]
     Active Substance: ACETAMINOPHEN
     Indication: Product used for unknown indication
     Dosage: 3 GRAM, QD (TDS (JUST INCREASED TO REGULAR TODAY)) THINKS THIS IS WHAT CAUSED  ASPIRATION PRIOR TO A
     Route: 065
  7. TRIMETHOPRIM [Concomitant]
     Active Substance: TRIMETHOPRIM
     Indication: Prophylaxis
     Dosage: 200 MILLIGRAM, OD (6PM)
     Route: 065
  8. TIZANIDINE [Concomitant]
     Active Substance: TIZANIDINE
     Indication: Product used for unknown indication
     Dosage: 4 MILLIGRAM, OD (6PM)
     Route: 065
  9. DIETARY SUPPLEMENT [Concomitant]
     Active Substance: DIETARY SUPPLEMENT
     Indication: Product used for unknown indication
     Dosage: 800 MILLILITER,OD (RECENTLY CHANGED FROM OSMOLITE BY DIETETICS 6/2/16-THIS WAS NOT  ADDED TO PENDLET
     Route: 065

REACTIONS (3)
  - Pneumonia aspiration [Recovered/Resolved]
  - Dyspnoea [Unknown]
  - Dysphagia [Unknown]
